FAERS Safety Report 9632838 (Version 3)
Quarter: 2014Q2

REPORT INFORMATION
  Report Type: Spontaneous
  Country: US (occurrence: US)
  Receive Date: 20131018
  Receipt Date: 20140424
  Transmission Date: 20141212
  Serious: Yes (Hospitalization)
  Sender: FDA-Public Use
  Company Number: US-B.I. PHARMACEUTICALS,INC./RIDGEFIELD-2013-BI-33468BP

PATIENT
  Age: 74 Year
  Sex: Male
  Weight: 55.34 kg

DRUGS (12)
  1. PRADAXA [Suspect]
     Indication: ANTICOAGULANT THERAPY
     Dosage: 150 MG
     Route: 065
     Dates: start: 20111105, end: 20120516
  2. ASPIRIN [Concomitant]
     Dosage: 81 MG
     Route: 048
  3. BETAPACE [Concomitant]
     Dosage: 160 MG
     Route: 048
  4. DURAGESIC [Concomitant]
     Route: 062
  5. FLECTOR [Concomitant]
     Route: 061
  6. LIDODERM [Concomitant]
     Route: 061
  7. LISINOPRIL/HCTZ [Concomitant]
     Route: 048
  8. MORPHINE PAIN PUMP [Concomitant]
     Route: 065
  9. NEXIUM [Concomitant]
     Dosage: 40 MG
     Route: 048
  10. OXYCONTIN [Concomitant]
     Dosage: 80 MG
     Route: 048
  11. PERCOCET [Concomitant]
     Indication: PAIN
     Route: 048
  12. VITAMIN D [Concomitant]
     Dosage: 1000 U
     Route: 048

REACTIONS (4)
  - Upper gastrointestinal haemorrhage [Unknown]
  - Anaemia [Unknown]
  - Pneumonia [Unknown]
  - Blood urine present [Unknown]
